FAERS Safety Report 7939966-1 (Version None)
Quarter: 2011Q4

REPORT INFORMATION
  Report Type: 
  Country: None (occurrence: None)
  Receive Date: 20111125
  Receipt Date: 20111116
  Transmission Date: 20120403
  Serious: Yes (Hospitalization, Other)
  Sender: FDA-Public Use
  Company Number: PHEH2011US06984

PATIENT
  Sex: Female

DRUGS (4)
  1. GILENYA [Suspect]
     Indication: MULTIPLE SCLEROSIS
     Dosage: 0.5 MG, QD
     Route: 048
     Dates: start: 20110921
  2. DESOGESTREL AND ETHINYL ESTRADIOL [Concomitant]
  3. GABAPENTIN [Concomitant]
     Dosage: 1000 MG, TID
  4. BACLOFEN [Concomitant]
     Dosage: 20 MG, TID

REACTIONS (11)
  - SYNCOPE [None]
  - PARAESTHESIA [None]
  - HEADACHE [None]
  - HYPERHIDROSIS [None]
  - FEELING JITTERY [None]
  - ELECTROCARDIOGRAM QT PROLONGED [None]
  - HYPOAESTHESIA [None]
  - NAUSEA [None]
  - BLOOD PRESSURE DECREASED [None]
  - DIZZINESS [None]
  - SINUS BRADYCARDIA [None]
